FAERS Safety Report 11508905 (Version 1)
Quarter: 2015Q3

REPORT INFORMATION
  Report Type: Spontaneous
  Country: US (occurrence: US)
  Receive Date: 20150903
  Receipt Date: 20150903
  Transmission Date: 20151125
  Serious: No
  Sender: FDA-Public Use
  Company Number: US-ELI_LILLY_AND_COMPANY-US201002002327

PATIENT
  Age: 50 Year
  Sex: Male

DRUGS (4)
  1. HUMALOG [Suspect]
     Active Substance: INSULIN LISPRO
     Dates: start: 201001
  2. LOVENOX [Concomitant]
     Active Substance: ENOXAPARIN SODIUM
  3. LANTUS SOLOSTAR [Concomitant]
     Active Substance: INSULIN GLARGINE
     Indication: TYPE 2 DIABETES MELLITUS
     Dosage: 28 U, DAILY (1/D)
     Dates: start: 2009
  4. AMARYL [Concomitant]
     Active Substance: GLIMEPIRIDE
     Dates: end: 201001

REACTIONS (3)
  - Injection site erythema [Unknown]
  - Blood glucose decreased [Unknown]
  - Blood glucose increased [Unknown]

NARRATIVE: CASE EVENT DATE: 201001
